FAERS Safety Report 24908770 (Version 6)
Quarter: 2025Q2

REPORT INFORMATION
  Report Type: Report from Study
  Country: US (occurrence: US)
  Receive Date: 20250131
  Receipt Date: 20250423
  Transmission Date: 20250716
  Serious: Yes (Death, Hospitalization, Other)
  Sender: SUNOVION
  Company Number: US-SUMITOMO PHARMA SWITZERLAND GMBH-2025SPA000709

PATIENT

DRUGS (7)
  1. ORGOVYX [Suspect]
     Active Substance: RELUGOLIX
     Indication: Prostate cancer
     Dosage: 120 MG, QD
     Route: 048
     Dates: start: 20250116
  2. XTANDI [Concomitant]
     Active Substance: ENZALUTAMIDE
     Indication: Product used for unknown indication
     Route: 065
  3. AMLODIPINE [Concomitant]
     Active Substance: AMLODIPINE BESYLATE
     Route: 065
  4. CLONIDINE [Concomitant]
     Active Substance: CLONIDINE
     Route: 065
  5. HYDROCHLOROTHIAZIDE [Concomitant]
     Active Substance: HYDROCHLOROTHIAZIDE
     Route: 065
  6. TAMSULOSIN [Concomitant]
     Active Substance: TAMSULOSIN
     Route: 065
  7. VALSARTAN [Concomitant]
     Active Substance: VALSARTAN
     Route: 065

REACTIONS (6)
  - Death [Fatal]
  - Pneumonia [Unknown]
  - T-cell lymphoma [Unknown]
  - Oropharyngeal discomfort [Unknown]
  - Incorrect dose administered [Unknown]
  - Product dose omission issue [Unknown]
